FAERS Safety Report 9486084 (Version 3)
Quarter: 2013Q4

REPORT INFORMATION
  Report Type: Report from Study
  Country: JP (occurrence: JP)
  Receive Date: 20130829
  Receipt Date: 20131028
  Transmission Date: 20140711
  Serious: Yes (Other)
  Sender: FDA-Public Use
  Company Number: JP-JNJFOC-20130614404

PATIENT
  Age: 56 Year
  Sex: Female
  Weight: 59 kg

DRUGS (17)
  1. SIMPONI [Suspect]
     Indication: RHEUMATOID ARTHRITIS
     Route: 058
     Dates: start: 20121026, end: 20121026
  2. SIMPONI [Suspect]
     Indication: RHEUMATOID ARTHRITIS
     Route: 058
     Dates: start: 20121126, end: 20121126
  3. SIMPONI [Suspect]
     Indication: RHEUMATOID ARTHRITIS
     Route: 058
     Dates: start: 20121225, end: 20121225
  4. SIMPONI [Suspect]
     Indication: RHEUMATOID ARTHRITIS
     Route: 058
     Dates: start: 20130118, end: 20130118
  5. SIMPONI [Suspect]
     Indication: RHEUMATOID ARTHRITIS
     Route: 058
     Dates: start: 20130218, end: 20130218
  6. SIMPONI [Suspect]
     Indication: RHEUMATOID ARTHRITIS
     Route: 058
     Dates: start: 20130315
  7. SIMPONI [Suspect]
     Indication: RHEUMATOID ARTHRITIS
     Route: 058
     Dates: start: 20120928, end: 20120928
  8. RHEUMATREX [Suspect]
     Indication: RHEUMATOID ARTHRITIS
     Route: 048
     Dates: start: 201102, end: 20130104
  9. RHEUMATREX [Suspect]
     Indication: RHEUMATOID ARTHRITIS
     Route: 048
     Dates: start: 20130105
  10. CELECOX [Concomitant]
     Indication: RHEUMATOID ARTHRITIS
     Route: 048
  11. FOLIAMIN [Concomitant]
     Indication: RHEUMATOID ARTHRITIS
     Route: 065
  12. YAKUBAN [Concomitant]
     Indication: RHEUMATOID ARTHRITIS
     Route: 062
     Dates: start: 20120928
  13. GASTER [Concomitant]
     Indication: PROPHYLAXIS
     Route: 065
  14. AMLODIPINE [Concomitant]
     Indication: HYPERTENSION
     Route: 048
  15. CRESTOR [Concomitant]
     Indication: HYPERLIPIDAEMIA
     Route: 048
  16. EPADEL [Concomitant]
     Indication: HYPERLIPIDAEMIA
     Route: 048
  17. CETIRIZINE HYDROCHLORIDE [Concomitant]
     Indication: DERMATITIS ALLERGIC
     Route: 048

REACTIONS (3)
  - Hepatic function abnormal [Recovering/Resolving]
  - Rhinitis allergic [Recovered/Resolved]
  - Bronchitis [Recovered/Resolved]
